FAERS Safety Report 21504629 (Version 2)
Quarter: 2022Q4

REPORT INFORMATION
  Report Type: Other
  Country: AU (occurrence: AU)
  Receive Date: 20221025
  Receipt Date: 20221114
  Transmission Date: 20230112
  Serious: Yes (Other)
  Sender: FDA-Public Use
  Company Number: AU-ASTELLAS-2022US023347

PATIENT
  Age: 24 Year
  Sex: Male

DRUGS (10)
  1. TACROLIMUS [Suspect]
     Active Substance: TACROLIMUS
     Indication: Cheilitis granulomatosa
     Dosage: UNK UNK, UNKNOWN FREQ.
     Route: 061
  2. CYCLOSPORINE [Suspect]
     Active Substance: CYCLOSPORINE
     Indication: Cheilitis granulomatosa
     Dosage: UNK UNK, UNKNOWN FREQ.
     Route: 065
  3. DAPSONE [Suspect]
     Active Substance: DAPSONE
     Indication: Cheilitis granulomatosa
     Dosage: UNK UNK, UNKNOWN FREQ.
     Route: 065
  4. AZATHIOPRINE [Suspect]
     Active Substance: AZATHIOPRINE
     Indication: Cheilitis granulomatosa
     Dosage: UNK UNK, UNKNOWN FREQ.
     Route: 065
  5. MYCOPHENOLATE MOFETIL [Suspect]
     Active Substance: MYCOPHENOLATE MOFETIL
     Indication: Cheilitis granulomatosa
     Dosage: UNK UNK, UNKNOWN FREQ.
     Route: 065
  6. ACITRETIN [Suspect]
     Active Substance: ACITRETIN
     Indication: Cheilitis granulomatosa
     Dosage: UNK UNK, UNKNOWN FREQ.
     Route: 065
  7. ITRACONAZOLE [Suspect]
     Active Substance: ITRACONAZOLE
     Indication: Cheilitis granulomatosa
     Dosage: UNK UNK, UNKNOWN FREQ.
     Route: 065
  8. HYDROXYCHLOROQUINE SULFATE [Suspect]
     Active Substance: HYDROXYCHLOROQUINE SULFATE
     Indication: Cheilitis granulomatosa
     Dosage: UNK UNK, UNKNOWN FREQ.
     Route: 065
  9. METHOTREXATE [Suspect]
     Active Substance: METHOTREXATE
     Indication: Cheilitis granulomatosa
     Dosage: UNK UNK, UNKNOWN FREQ.
     Route: 065
  10. PREDNISOLONE [Concomitant]
     Active Substance: PREDNISOLONE
     Indication: Cheilitis granulomatosa
     Dosage: 0.5 MG/KG, UNKNOWN FREQ.
     Route: 065

REACTIONS (1)
  - Drug ineffective [Recovering/Resolving]
